FAERS Safety Report 24368793 (Version 1)
Quarter: 2024Q3

REPORT INFORMATION
  Report Type: Spontaneous
  Country: US (occurrence: US)
  Receive Date: 20240927
  Receipt Date: 20240927
  Transmission Date: 20241016
  Serious: No
  Sender: EMCURE
  Company Number: US-AVET LIFESCIENCES LTD-2024-AVET-000338

PATIENT

DRUGS (1)
  1. BUPROPION HYDROCHLORIDE [Suspect]
     Active Substance: BUPROPION HYDROCHLORIDE
     Indication: Smoking cessation therapy
     Dosage: 75 MILLIGRAM, BID
     Route: 048
     Dates: start: 20240914

REACTIONS (4)
  - Burning sensation [Unknown]
  - Abdominal discomfort [Unknown]
  - Dysuria [Unknown]
  - Off label use [Unknown]

NARRATIVE: CASE EVENT DATE: 20240919
